FAERS Safety Report 8008894-8 (Version None)
Quarter: 2011Q4

REPORT INFORMATION
  Report Type: 
  Country: None (occurrence: None)
  Receive Date: 20111221
  Receipt Date: 20111212
  Transmission Date: 20120403
  Serious: Yes (Other)
  Sender: FDA-Public Use
  Company Number: 2011-01398

PATIENT
  Age: 67 Year
  Sex: Female
  Weight: 61.5 kg

DRUGS (4)
  1. ZOPICLONE [Concomitant]
  2. BENDROFLUAZIDE [Concomitant]
  3. SIMVASTATIN [Suspect]
     Indication: PRODUCT USED FOR UNKNOWN INDICATION
     Dates: start: 20110712
  4. INFLUENZA VIRUS [Concomitant]

REACTIONS (2)
  - NIGHTMARE [None]
  - SLEEP DISORDER [None]
